FAERS Safety Report 4947839-1 (Version None)
Quarter: 2006Q1

REPORT INFORMATION
  Report Type: 
  Country: None (occurrence: None)
  Receive Date: 20060317
  Receipt Date: 20060317
  Transmission Date: 20060701
  Serious: Yes (Death, Hospitalization)
  Sender: FDA-Public Use
  Company Number: None

PATIENT
  Sex: Male
  Weight: 97.0698 kg

DRUGS (2)
  1. SPIRONOLACTONE [Suspect]
     Indication: ASCITES
     Dosage: 25MG   5 TABLETS QAM  PO
     Route: 048
     Dates: start: 20001201, end: 20051107
  2. FUROSEMIDE [Suspect]
     Indication: ASCITES
     Dosage: 20MG   1 TABLET QAM  PO
     Route: 048
     Dates: start: 20050923, end: 20051107

REACTIONS (9)
  - ASTHENIA [None]
  - ATRIAL FIBRILLATION [None]
  - BLOOD PRESSURE DECREASED [None]
  - CARDIO-RESPIRATORY ARREST [None]
  - COUGH [None]
  - DIZZINESS [None]
  - HYPONATRAEMIA [None]
  - HYPOVOLAEMIA [None]
  - REFUSAL OF TREATMENT BY RELATIVE [None]
